FAERS Safety Report 17910914 (Version 1)
Quarter: 2020Q2

REPORT INFORMATION
  Report Type: Spontaneous
  Country: ES (occurrence: ES)
  Receive Date: 20200618
  Receipt Date: 20200618
  Transmission Date: 20200714
  Serious: Yes (Other)
  Sender: FDA-Public Use
  Company Number: ES-TEVA-2020-ES-1788047

PATIENT
  Age: 63 Year
  Sex: Male

DRUGS (7)
  1. LOPINAVIR/RITONAVIR 200 MG/50 MG COMPRIMIDO [Suspect]
     Active Substance: LOPINAVIR\RITONAVIR
     Indication: COVID-19 PNEUMONIA
     Dosage: 2 DOSAGE FORMS
     Route: 048
     Dates: start: 20200518, end: 20200520
  2. ATROVENT [Concomitant]
     Active Substance: IPRATROPIUM BROMIDE
     Indication: BRONCHITIS CHRONIC
     Dosage: 40 MCG
     Route: 055
     Dates: start: 20190530
  3. ACIDO FOLICO 5 MG 28 COMPRIMIDOS [Concomitant]
     Indication: ANAEMIA FOLATE DEFICIENCY
     Dosage: 5 MG
     Route: 048
     Dates: start: 20200501
  4. TRIMBOW 87 MICROGRAMOS/5 MICROGRAMOS/9 MICROGRAMOS SOLUCION PARA INHAL [Concomitant]
     Indication: BRONCHITIS CHRONIC
     Dosage: 2 DOSAGE FORMS
     Route: 055
     Dates: start: 20200214
  5. AZITROMICINA (7019A) [Suspect]
     Active Substance: AZITHROMYCIN
     Indication: COVID-19 PNEUMONIA
     Dates: start: 20200518, end: 20200523
  6. HIDROXICLOROQUINA (2143A) [Suspect]
     Active Substance: HYDROXYCHLOROQUINE
     Indication: COVID-19 PNEUMONIA
     Dosage: 200 MG
     Route: 048
     Dates: start: 20200518, end: 20200523
  7. AMOXICILINA/ACIDO CLAVULANICO 1.000 MG/200 MG INYECTABLE [Suspect]
     Active Substance: AMOXICILLIN\CLAVULANIC ACID
     Indication: SUPERINFECTION MYCOBACTERIAL
     Dosage: 1 DOSAGE FORM
     Route: 042
     Dates: start: 20200518, end: 20200521

REACTIONS (1)
  - Abdominal discomfort [Recovered/Resolved]

NARRATIVE: CASE EVENT DATE: 20200519
